FAERS Safety Report 5221733-3 (Version None)
Quarter: 2007Q1

REPORT INFORMATION
  Report Type: 
  Country: None (occurrence: None)
  Receive Date: 20070129
  Receipt Date: 20070122
  Transmission Date: 20070707
  Serious: Yes (Other)
  Sender: FDA-Public Use
  Company Number: CH-AVENTIS-200710608GDDC

PATIENT
  Age: 57 Year
  Sex: Male

DRUGS (4)
  1. FLUOROURACIL [Suspect]
     Indication: RECTAL CANCER METASTATIC
     Dosage: DOSE: 500 MG/M2 ONCE A WEEK FOR FOUR WEEKS
     Route: 042
  2. LEUCOVORIN CALCIUM [Suspect]
     Indication: RECTAL CANCER METASTATIC
     Dosage: DOSE: 20 MG/M2 ONCE A WEEK FOR FOUR WEEKS
     Route: 042
  3. BEVACIZUMAB [Suspect]
     Indication: RECTAL CANCER METASTATIC
     Dosage: DOSE: 5 MG/KG
     Route: 042
  4. IRINOTECAN HCL [Suspect]
     Indication: RECTAL CANCER METASTATIC
     Dosage: DOSE: 125 MG/2 ONCE A WEEK FOR FOUR WEEKS
     Route: 042

REACTIONS (3)
  - AORTIC THROMBOSIS [None]
  - NECROSIS [None]
  - TOE AMPUTATION [None]
